FAERS Safety Report 7317366-5 (Version None)
Quarter: 2011Q1

REPORT INFORMATION
  Report Type: 
  Country: None (occurrence: None)
  Receive Date: 20110226
  Receipt Date: 20101027
  Transmission Date: 20110831
  Serious: No
  Sender: FDA-Public Use
  Company Number: US-ALLERGAN-1013898US

PATIENT
  Age: 21 Year
  Sex: Female

DRUGS (2)
  1. BOTOXA? [Suspect]
     Indication: DYSTONIA
     Dosage: 800 UNITS, SINGLE
  2. BOTOXA? [Suspect]
     Dosage: 300 UNITS, SINGLE
     Dates: start: 20100101, end: 20100101

REACTIONS (2)
  - ASTHENIA [None]
  - HYPOAESTHESIA [None]
